FAERS Safety Report 12638151 (Version 3)
Quarter: 2018Q4

REPORT INFORMATION
  Report Type: Report from Study
  Country: US (occurrence: US)
  Receive Date: 20160809
  Receipt Date: 20181005
  Transmission Date: 20190204
  Serious: Yes (Other)
  Sender: FDA-Public Use
  Company Number: US-SA-2016SA122510

PATIENT
  Sex: Male

DRUGS (4)
  1. ALIROCUMAB [Suspect]
     Active Substance: ALIROCUMAB
     Dosage: 75 MG, QOW
  2. ALIROCUMAB PREFILLED PEN [Suspect]
     Active Substance: ALIROCUMAB
     Dosage: 75 MG, QOW
  3. ALIROCUMAB [Suspect]
     Active Substance: ALIROCUMAB
     Indication: ANEURYSM
     Dosage: 75 MG, QOW
  4. ALIROCUMAB PREFILLED PEN [Suspect]
     Active Substance: ALIROCUMAB
     Indication: ANEURYSM
     Dosage: 75 MG, QOW

REACTIONS (7)
  - Product dose omission [Unknown]
  - Gastrooesophageal reflux disease [Unknown]
  - Dizziness [Unknown]
  - Appendicitis perforated [Unknown]
  - Chest discomfort [Unknown]
  - Hiatus hernia [Unknown]
  - Productive cough [Unknown]
